FAERS Safety Report 24045353 (Version 1)
Quarter: 2024Q3

REPORT INFORMATION
  Report Type: Spontaneous
  Country: US (occurrence: US)
  Receive Date: 20240703
  Receipt Date: 20240703
  Transmission Date: 20241016
  Serious: Yes (Other)
  Sender: MYLAN
  Company Number: US-MYLANLABS-2024M1060808

PATIENT
  Age: 7 Decade
  Sex: Male

DRUGS (5)
  1. PREDNISONE [Suspect]
     Active Substance: PREDNISONE
     Indication: Headache
     Dosage: 60 MILLIGRAM, QD
     Route: 048
  2. PREDNISONE [Suspect]
     Active Substance: PREDNISONE
     Indication: Rash
     Dosage: UNK (DOSE TAPERED)
     Route: 048
  3. PREDNISONE [Suspect]
     Active Substance: PREDNISONE
     Indication: Optic neuritis
  4. PREDNISONE [Suspect]
     Active Substance: PREDNISONE
     Indication: Retinitis
  5. MYCOPHENOLATE MOFETIL [Concomitant]
     Active Substance: MYCOPHENOLATE MOFETIL
     Indication: Connective tissue disorder
     Dosage: UNK
     Route: 065

REACTIONS (5)
  - Rebound effect [Unknown]
  - Rash [Recovered/Resolved]
  - Retinitis [Recovered/Resolved]
  - Optic neuritis [Recovered/Resolved]
  - Medication overuse headache [Unknown]
